FAERS Safety Report 18755296 (Version 1)
Quarter: 2021Q1

REPORT INFORMATION
  Report Type: Spontaneous
  Country: DE (occurrence: DE)
  Receive Date: 20210119
  Receipt Date: 20210119
  Transmission Date: 20210419
  Serious: Yes (Death)
  Sender: FDA-Public Use
  Company Number: NVSC2021DE010740

PATIENT
  Sex: Female

DRUGS (1)
  1. PIQRAY [Suspect]
     Active Substance: ALPELISIB
     Indication: BREAST CANCER
     Dosage: 300 MG
     Route: 065
     Dates: start: 2020

REACTIONS (6)
  - Rash [Unknown]
  - Gastrointestinal toxicity [Unknown]
  - Malignant neoplasm progression [Fatal]
  - Hyperglycaemia [Unknown]
  - Off label use [Unknown]
  - Breast cancer [Fatal]

NARRATIVE: CASE EVENT DATE: 2020
